FAERS Safety Report 24658187 (Version 2)
Quarter: 2024Q4

REPORT INFORMATION
  Report Type: Spontaneous
  Country: JP (occurrence: JP)
  Receive Date: 20241125
  Receipt Date: 20241205
  Transmission Date: 20250115
  Serious: Yes (Death, Other)
  Sender: AMGEN
  Company Number: JP-AMGEN-JPNSP2024228636

PATIENT

DRUGS (1)
  1. ROMOSOZUMAB [Suspect]
     Active Substance: ROMOSOZUMAB
     Indication: Osteoporosis
     Dosage: 210 MILLIGRAM, QMO
     Route: 058

REACTIONS (16)
  - Death [Fatal]
  - Radius fracture [Unknown]
  - Humerus fracture [Unknown]
  - Patella fracture [Unknown]
  - Lower limb fracture [Unknown]
  - Fall [Unknown]
  - Ligament sprain [Unknown]
  - Spinal fracture [Unknown]
  - Femur fracture [Unknown]
  - Rib fracture [Unknown]
  - Hypocalcaemia [Unknown]
  - Pruritus [Unknown]
  - Injection site pain [Unknown]
  - Apathy [Unknown]
  - Feeling abnormal [Unknown]
  - Physical deconditioning [Unknown]
